FAERS Safety Report 7088664-8 (Version None)
Quarter: 2010Q4

REPORT INFORMATION
  Report Type: 
  Country: None (occurrence: None)
  Receive Date: 20101108
  Receipt Date: 20101020
  Transmission Date: 20110411
  Serious: No
  Sender: FDA-Public Use
  Company Number: US-BAYER-201018827NA

PATIENT
  Age: 25 Year
  Sex: Female
  Weight: 50 kg

DRUGS (1)
  1. MIRENA [Suspect]
     Indication: CONTRACEPTION
     Dosage: FREQUECY CONTINUOUS
     Route: 015
     Dates: start: 20080120

REACTIONS (5)
  - BREAST ENLARGEMENT [None]
  - HYPOMENORRHOEA [None]
  - MENSTRUATION DELAYED [None]
  - MUSCLE SPASMS [None]
  - VAGINAL HAEMORRHAGE [None]
